FAERS Safety Report 18952254 (Version 5)
Quarter: 2021Q3

REPORT INFORMATION
  Report Type: Report from Study
  Country: US (occurrence: US)
  Receive Date: 20210301
  Receipt Date: 20210908
  Transmission Date: 20211014
  Serious: Yes (Hospitalization)
  Sender: FDA-Public Use
  Company Number: US-TAKEDA-2021TUS011858

PATIENT
  Sex: Male

DRUGS (12)
  1. TEDUGLUTIDE [Suspect]
     Active Substance: TEDUGLUTIDE
     Dosage: 4.25 MILLIGRAM, QD
     Route: 058
     Dates: start: 20210203
  2. TEDUGLUTIDE [Suspect]
     Active Substance: TEDUGLUTIDE
     Dosage: 4.25 MILLIGRAM, QD
     Route: 058
     Dates: start: 20210203
  3. TEDUGLUTIDE [Suspect]
     Active Substance: TEDUGLUTIDE
     Dosage: 4.25 MILLIGRAM, QD
     Route: 058
     Dates: start: 20210203
  4. TEDUGLUTIDE [Suspect]
     Active Substance: TEDUGLUTIDE
     Dosage: 4.25 MILLIGRAM, QD
     Route: 058
     Dates: start: 202102
  5. TEDUGLUTIDE [Suspect]
     Active Substance: TEDUGLUTIDE
     Dosage: 4.25 MILLIGRAM, QD
     Route: 058
     Dates: start: 202102
  6. TEDUGLUTIDE [Suspect]
     Active Substance: TEDUGLUTIDE
     Dosage: 4.25 MILLIGRAM, QD
     Route: 058
     Dates: start: 202102
  7. TEDUGLUTIDE [Suspect]
     Active Substance: TEDUGLUTIDE
     Indication: SHORT-BOWEL SYNDROME
     Dosage: 4.25 MILLIGRAM,QD
     Route: 058
     Dates: start: 20210202
  8. TEDUGLUTIDE [Suspect]
     Active Substance: TEDUGLUTIDE
     Dosage: 4.25 MILLIGRAM, QD
     Route: 058
     Dates: start: 20210203
  9. TEDUGLUTIDE [Suspect]
     Active Substance: TEDUGLUTIDE
     Indication: SHORT-BOWEL SYNDROME
     Dosage: 4.25 MILLIGRAM,QD
     Route: 058
     Dates: start: 20210202
  10. TEDUGLUTIDE [Suspect]
     Active Substance: TEDUGLUTIDE
     Indication: SHORT-BOWEL SYNDROME
     Dosage: 4.25 MILLIGRAM,QD
     Route: 058
     Dates: start: 20210202
  11. TEDUGLUTIDE [Suspect]
     Active Substance: TEDUGLUTIDE
     Indication: SHORT-BOWEL SYNDROME
     Dosage: 4.25 MILLIGRAM,QD
     Route: 058
     Dates: start: 20210202
  12. TEDUGLUTIDE [Suspect]
     Active Substance: TEDUGLUTIDE
     Dosage: 4.25 MILLIGRAM, QD
     Route: 058
     Dates: start: 202102

REACTIONS (7)
  - Skin exfoliation [Unknown]
  - Blood pressure decreased [Unknown]
  - Hypotension [Unknown]
  - Tracheal disorder [Unknown]
  - Dumping syndrome [Unknown]
  - Injection site mass [Recovered/Resolved]
  - Diarrhoea [Unknown]
